FAERS Safety Report 18188583 (Version 1)
Quarter: 2020Q3

REPORT INFORMATION
  Report Type: Spontaneous
  Country: CN (occurrence: CN)
  Receive Date: 20200824
  Receipt Date: 20200824
  Transmission Date: 20201103
  Serious: Yes (Death, Other)
  Sender: FDA-Public Use
  Company Number: CN-GLAXOSMITHKLINE-CN2020APC164850

PATIENT
  Age: 82 Year
  Sex: Male

DRUGS (5)
  1. IMIPENEM [Suspect]
     Active Substance: IMIPENEM
     Indication: PNEUMONIA
     Dosage: UNK
  2. CILASTATIN SODIUM [Suspect]
     Active Substance: CILASTATIN SODIUM
     Indication: PNEUMONIA
     Dosage: UNK
     Route: 042
  3. CEFUROXIME AXETIL. [Suspect]
     Active Substance: CEFUROXIME AXETIL
     Indication: PNEUMONIA
     Dosage: UNK
     Route: 048
     Dates: start: 20190824
  4. AMIKACIN SULFATE. [Suspect]
     Active Substance: AMIKACIN SULFATE
     Indication: PNEUMONIA
     Dosage: UNK
     Route: 042
  5. TRIMETHOPRIM + SULFAMETHOXAZOL [Suspect]
     Active Substance: SULFAMERAZINE SODIUM\TRIMETHOPRIM
     Indication: PULMONARY NOCARDIOSIS
     Dosage: 0.96 G, TID
     Route: 048
     Dates: start: 20190826

REACTIONS (6)
  - Pathogen resistance [Unknown]
  - Death [Fatal]
  - Anuria [Unknown]
  - Oxygen saturation decreased [Unknown]
  - Drug ineffective [Unknown]
  - Coma [Unknown]

NARRATIVE: CASE EVENT DATE: 20190826
